FAERS Safety Report 12275866 (Version 1)
Quarter: 2016Q2

REPORT INFORMATION
  Report Type: Spontaneous
  Country: US (occurrence: US)
  Receive Date: 20160418
  Receipt Date: 20160418
  Transmission Date: 20160815
  Serious: Yes (Other)
  Sender: FDA-Public Use
  Company Number: US-BEH-2016061183

PATIENT
  Sex: Female
  Weight: 49 kg

DRUGS (20)
  1. LEVSIN [Concomitant]
     Active Substance: HYOSCYAMINE SULFATE
  2. EPIPEN [Concomitant]
     Active Substance: EPINEPHRINE
  3. LEUCOVORIN. [Concomitant]
     Active Substance: LEUCOVORIN
  4. RESTORIL [Concomitant]
     Active Substance: TEMAZEPAM
  5. PREVACID [Concomitant]
     Active Substance: LANSOPRAZOLE
  6. NORCO [Concomitant]
     Active Substance: ACETAMINOPHEN\HYDROCODONE BITARTRATE
  7. ATENOLOL. [Concomitant]
     Active Substance: ATENOLOL
  8. KLONOPIN [Concomitant]
     Active Substance: CLONAZEPAM
  9. WELLBUTRIN [Concomitant]
     Active Substance: BUPROPION HYDROCHLORIDE
  10. HUMIRA [Concomitant]
     Active Substance: ADALIMUMAB
  11. FLEXERIL [Concomitant]
     Active Substance: CYCLOBENZAPRINE HYDROCHLORIDE
  12. DIPHENHYDRAMINE. [Concomitant]
     Active Substance: DIPHENHYDRAMINE
  13. DRONABINOL. [Concomitant]
     Active Substance: DRONABINOL
  14. HIZENTRA [Suspect]
     Active Substance: HUMAN IMMUNOGLOBULIN G
     Indication: IMMUNODEFICIENCY
     Route: 058
     Dates: start: 20110615
  15. FLUCONAZOLE. [Concomitant]
     Active Substance: FLUCONAZOLE
  16. LOVENOX [Concomitant]
     Active Substance: ENOXAPARIN SODIUM
  17. CYANOCOBALAMIN. [Concomitant]
     Active Substance: CYANOCOBALAMIN
  18. ACETAMINOPHEN. [Concomitant]
     Active Substance: ACETAMINOPHEN
  19. LMX [Concomitant]
     Active Substance: LIDOCAINE
  20. METHOTREXATE [Concomitant]
     Active Substance: METHOTREXATE

REACTIONS (1)
  - Thrombosis [Recovered/Resolved]
